FAERS Safety Report 4724570-9 (Version None)
Quarter: 2005Q3

REPORT INFORMATION
  Report Type: 
  Country: None (occurrence: None)
  Receive Date: 20050719
  Receipt Date: 20050719
  Transmission Date: 20060218
  Serious: Yes (Hospitalization)
  Sender: FDA-Public Use
  Company Number: None

PATIENT
  Age: 53 Year
  Sex: Female
  Weight: 77.1115 kg

DRUGS (3)
  1. CARBOPLATIN [Suspect]
     Indication: OVARIAN CANCER
     Dosage: AUC 5 1000 MG/M2 } IV Q 3 WEEKS
     Route: 042
     Dates: start: 20040923, end: 20050127
  2. TAXOL [Suspect]
     Indication: OVARIAN CANCER
     Dosage: 135 MG/M2 IV Q 4 WKS
     Route: 042
     Dates: start: 20050317, end: 20050609
  3. GEMCITABINE [Suspect]
     Indication: OVARIAN CANCER
     Dosage: AUC 5 1000 MG/M2 IV Q 3 WEEKS
     Route: 042
     Dates: start: 20040923, end: 20050127

REACTIONS (2)
  - ARTERIAL OCCLUSIVE DISEASE [None]
  - CORONARY ARTERY DISEASE [None]
